FAERS Safety Report 16713277 (Version 2)
Quarter: 2019Q4

REPORT INFORMATION
  Report Type: Spontaneous
  Country: US (occurrence: US)
  Receive Date: 20190818
  Receipt Date: 20191220
  Transmission Date: 20200122
  Serious: No
  Sender: FDA-Public Use
  Company Number: US-TEVA-2019-US-1095314

PATIENT
  Age: 45 Year
  Sex: Female

DRUGS (5)
  1. AJOVY [Suspect]
     Active Substance: FREMANEZUMAB-VFRM
     Indication: MIGRAINE
     Dates: start: 20190604
  2. TOPIRAMATE. [Concomitant]
     Active Substance: TOPIRAMATE
  3. NAPROXEN. [Concomitant]
     Active Substance: NAPROXEN
  4. MAXALT [Concomitant]
     Active Substance: RIZATRIPTAN BENZOATE
  5. LEVOTHYROXINE. [Concomitant]
     Active Substance: LEVOTHYROXINE

REACTIONS (1)
  - Injection site reaction [Recovered/Resolved]

NARRATIVE: CASE EVENT DATE: 20190605
